FAERS Safety Report 19066858 (Version 1)
Quarter: 2021Q1

REPORT INFORMATION
  Report Type: Spontaneous
  Country: JP (occurrence: JP)
  Receive Date: 20210329
  Receipt Date: 20210329
  Transmission Date: 20210420
  Serious: Yes (Other)
  Sender: FDA-Public Use
  Company Number: JP-TAKEDA-2021TJP011697

PATIENT
  Age: 57 Year
  Sex: Male

DRUGS (6)
  1. ADVATE [Suspect]
     Active Substance: ANTIHEMOPHILIC FACTOR, HUMAN RECOMBINANT
     Indication: HAEMORRHAGE PROPHYLAXIS
  2. ADVATE [Suspect]
     Active Substance: ANTIHEMOPHILIC FACTOR, HUMAN RECOMBINANT
     Indication: FACTOR VIII DEFICIENCY
     Dosage: 2000 UNK
     Route: 042
     Dates: end: 20170628
  3. ADVATE [Suspect]
     Active Substance: ANTIHEMOPHILIC FACTOR, HUMAN RECOMBINANT
     Indication: HAEMORRHAGE PROPHYLAXIS
  4. ADVATE [Suspect]
     Active Substance: ANTIHEMOPHILIC FACTOR, HUMAN RECOMBINANT
     Indication: HAEMORRHAGE PROPHYLAXIS
  5. ADVATE [Suspect]
     Active Substance: ANTIHEMOPHILIC FACTOR, HUMAN RECOMBINANT
     Indication: FACTOR VIII DEFICIENCY
     Dosage: 2000 UNK
     Route: 042
     Dates: end: 20170628
  6. ADVATE [Suspect]
     Active Substance: ANTIHEMOPHILIC FACTOR, HUMAN RECOMBINANT
     Indication: FACTOR VIII DEFICIENCY
     Dosage: 2000 UNK
     Route: 042
     Dates: end: 20170628

REACTIONS (2)
  - Haemorrhage [Recovered/Resolved]
  - Haemarthrosis [Recovered/Resolved]

NARRATIVE: CASE EVENT DATE: 20170614
